FAERS Safety Report 9064948 (Version 1)
Quarter: 2013Q1

REPORT INFORMATION
  Report Type: Report from Study
  Country: US (occurrence: US)
  Receive Date: 20130206
  Receipt Date: 20130206
  Transmission Date: 20140127
  Serious: Yes (Other)
  Sender: FDA-Public Use
  Company Number: US-ROCHE-1181596

PATIENT
  Age: 9 None
  Sex: Female
  Weight: 25.2 kg

DRUGS (6)
  1. NUTROPIN [Suspect]
     Indication: BODY HEIGHT BELOW NORMAL
     Route: 058
     Dates: start: 20121010
  2. PREVACID [Concomitant]
     Indication: GASTROOESOPHAGEAL REFLUX DISEASE
     Route: 048
     Dates: start: 201210
  3. MIRALAX [Concomitant]
     Indication: CONSTIPATION
     Dosage: 3 TABLE SPOON
     Route: 048
     Dates: start: 201210
  4. ZANTAC [Concomitant]
     Indication: GASTROOESOPHAGEAL REFLUX DISEASE
     Route: 048
     Dates: start: 201210
  5. ALVESCO [Concomitant]
     Dosage: 1 PUFF
     Route: 042
     Dates: start: 201210
  6. ZYRTEC [Concomitant]
     Indication: HYPERSENSITIVITY
     Route: 048

REACTIONS (4)
  - Arthralgia [Not Recovered/Not Resolved]
  - Arthralgia [Unknown]
  - Joint lock [Unknown]
  - Pain [Not Recovered/Not Resolved]
